FAERS Safety Report 9509483 (Version 2)
Quarter: 2013Q3

REPORT INFORMATION
  Report Type: Spontaneous
  Country: US (occurrence: US)
  Receive Date: 20130909
  Receipt Date: 20130909
  Transmission Date: 20140515
  Serious: No
  Sender: FDA-Public Use
  Company Number: US-BRISTOL-MYERS SQUIBB COMPANY-18953372

PATIENT
  Age: 54 Year
  Sex: Female
  Weight: 72.56 kg

DRUGS (6)
  1. ABILIFY TABS [Suspect]
     Indication: DEPRESSION
     Dosage: STARTED AT 15MG INCR TO 20MG THEN DECR TO 15MG,10MG?15MG-LOT2L71581-EXP-DEC2015
  2. PRISTIQ [Concomitant]
  3. DEPAKOTE [Concomitant]
  4. TRAZODONE HCL [Concomitant]
  5. LEVOTHYROXINE [Concomitant]
  6. LISINOPRIL [Concomitant]

REACTIONS (3)
  - Blepharospasm [Unknown]
  - Muscle twitching [Unknown]
  - Drug ineffective [Unknown]
